FAERS Safety Report 6726790-0 (Version None)
Quarter: 2010Q2

REPORT INFORMATION
  Report Type: 
  Country: None (occurrence: None)
  Receive Date: 20100516
  Receipt Date: 20100504
  Transmission Date: 20101027
  Serious: Yes (Other)
  Sender: FDA-Public Use
  Company Number: US-JNJFOC-20100503623

PATIENT
  Age: 16 Month
  Sex: Male
  Weight: 9.53 kg

DRUGS (3)
  1. MOTRIN [Suspect]
     Route: 048
  2. MOTRIN [Suspect]
     Indication: EAR INFECTION
     Route: 048
  3. AMOXICILLIN [Concomitant]
     Indication: EAR INFECTION
     Route: 048

REACTIONS (3)
  - OEDEMA PERIPHERAL [None]
  - PRODUCT QUALITY ISSUE [None]
  - URTICARIA [None]
